FAERS Safety Report 16889937 (Version 2)
Quarter: 2020Q4

REPORT INFORMATION
  Report Type: Other
  Country: US (occurrence: US)
  Receive Date: 20191007
  Receipt Date: 20201217
  Transmission Date: 20210113
  Serious: Yes (Other)
  Sender: FDA-Public Use
  Company Number: US-ROCHE-2426794

PATIENT
  Age: 32 Year
  Sex: Female
  Weight: 61.29 kg

DRUGS (18)
  1. OCREVUS [Suspect]
     Active Substance: OCRELIZUMAB
     Indication: RELAPSING-REMITTING MULTIPLE SCLEROSIS
     Route: 042
     Dates: start: 20181029, end: 20200522
  2. OCREVUS [Suspect]
     Active Substance: OCRELIZUMAB
     Route: 042
  3. OCREVUS [Suspect]
     Active Substance: OCRELIZUMAB
     Route: 042
  4. XALATAN [Concomitant]
     Active Substance: LATANOPROST
  5. GABAPENTIN. [Suspect]
     Active Substance: GABAPENTIN
     Indication: NEURALGIA
     Dosage: 1 OR 2 CAPSULES UP TO THREE TIMES A DAY AS NEEDED
     Route: 048
     Dates: start: 201908
  6. COENZYME Q10 [Concomitant]
     Active Substance: DIETARY SUPPLEMENT\UBIDECARENONE
  7. ESOMEPRAZOLE MAGNESIUM. [Concomitant]
     Active Substance: ESOMEPRAZOLE MAGNESIUM
  8. FLOVENT [Concomitant]
     Active Substance: FLUTICASONE PROPIONATE
  9. TIZANIDINE. [Concomitant]
     Active Substance: TIZANIDINE
  10. LATANOPROST. [Concomitant]
     Active Substance: LATANOPROST
  11. STEROID (UNK INGREDIENTS) [Suspect]
     Active Substance: UNSPECIFIED INGREDIENT
     Indication: PREMEDICATION
     Route: 042
     Dates: start: 20181029, end: 20200522
  12. TYLENOL [Concomitant]
     Active Substance: ACETAMINOPHEN
  13. ALLEGRA [Concomitant]
     Active Substance: FEXOFENADINE HYDROCHLORIDE
  14. ALBUTEROL. [Concomitant]
     Active Substance: ALBUTEROL
  15. FEXONADINE [Concomitant]
  16. ADDERALL [Concomitant]
     Active Substance: AMPHETAMINE ASPARTATE\AMPHETAMINE SULFATE\DEXTROAMPHETAMINE SACCHARATE\DEXTROAMPHETAMINE SULFATE
  17. BENADRYL [Suspect]
     Active Substance: DIPHENHYDRAMINE HYDROCHLORIDE
     Indication: PREMEDICATION
     Route: 042
     Dates: start: 20181029, end: 20200522
  18. DUONEB [Concomitant]
     Active Substance: ALBUTEROL SULFATE\IPRATROPIUM BROMIDE

REACTIONS (10)
  - Herpes zoster [Recovered/Resolved]
  - Rash [Recovered/Resolved]
  - Pulmonary fibrosis [Not Recovered/Not Resolved]
  - Fall [Unknown]
  - Headache [Recovered/Resolved]
  - Fatigue [Not Recovered/Not Resolved]
  - Nausea [Recovered/Resolved]
  - Investigation abnormal [Not Recovered/Not Resolved]
  - Sleep terror [Recovered/Resolved]
  - Eye disorder [Unknown]

NARRATIVE: CASE EVENT DATE: 20181029
